FAERS Safety Report 6860847-9 (Version None)
Quarter: 2010Q3

REPORT INFORMATION
  Report Type: 
  Country: None (occurrence: None)
  Receive Date: 20100720
  Receipt Date: 20100712
  Transmission Date: 20110219
  Serious: Yes (Other)
  Sender: FDA-Public Use
  Company Number: US-B.I. PHARMACEUTICALS,INC./RIDGEFIELD-2010-BP-06873BP

PATIENT
  Age: 67 Year
  Sex: Male

DRUGS (2)
  1. MICARDIS [Suspect]
     Indication: HYPERTENSION
     Dosage: 40 MG
     Route: 048
     Dates: start: 20000601, end: 20100601
  2. NIFEDIAC [Concomitant]
     Indication: HYPERTENSION

REACTIONS (2)
  - NIGHT SWEATS [None]
  - PROSTATE CANCER [None]
